FAERS Safety Report 4548585-9 (Version None)
Quarter: 2005Q1

REPORT INFORMATION
  Report Type: 
  Country: None (occurrence: None)
  Receive Date: 20050105
  Receipt Date: 20050105
  Transmission Date: 20050727
  Serious: Yes (Disabling)
  Sender: FDA-Public Use
  Company Number: None

PATIENT
  Age: 47 Year
  Sex: Male
  Weight: 81.6475 kg

DRUGS (2)
  1. PEGINTERFERON ALFA-2A [Suspect]
     Indication: HEPATITIS C
     Dosage: 180 MICROGRAMS SUB Q ONCE WEEKLY
     Route: 058
     Dates: start: 20030501, end: 20040401
  2. RIBAVIRIN [Suspect]
     Indication: HEPATITIS C
     Dosage: 1200 MG PER DAY
     Dates: start: 20030501, end: 20040401

REACTIONS (9)
  - DYSSTASIA [None]
  - EXERCISE CAPACITY DECREASED [None]
  - EYE IRRITATION [None]
  - FATIGUE [None]
  - PAIN [None]
  - PHOTOPHOBIA [None]
  - VISION BLURRED [None]
  - VISUAL DISTURBANCE [None]
  - VITREOUS FLOATERS [None]
